FAERS Safety Report 6917994-2 (Version None)
Quarter: 2010Q3

REPORT INFORMATION
  Report Type: 
  Country: None (occurrence: None)
  Receive Date: 20100810
  Receipt Date: 20091110
  Transmission Date: 20110219
  Serious: No
  Sender: FDA-Public Use
  Company Number: US-PFIZER INC-2009273834

PATIENT
  Age: 63 Year
  Sex: Female
  Weight: 116 kg

DRUGS (12)
  1. TOVIAZ [Suspect]
     Indication: INCONTINENCE
     Dosage: 4 MG, 1X/DAY
     Dates: start: 20090910
  2. METFORMIN [Concomitant]
  3. GLIMEPIRIDE [Concomitant]
  4. ATENOLOL [Concomitant]
  5. SITAGLIPTIN [Concomitant]
  6. WELLBUTRIN [Concomitant]
  7. ADDERALL 10 [Concomitant]
  8. EFFEXOR [Concomitant]
  9. ARICEPT [Concomitant]
  10. KLONOPIN [Concomitant]
  11. INSULIN [Concomitant]
  12. AMPHETAMINE SULFATE [Concomitant]

REACTIONS (2)
  - DIARRHOEA [None]
  - STRESS [None]
